FAERS Safety Report 15127653 (Version 2)
Quarter: 2019Q2

REPORT INFORMATION
  Report Type: Spontaneous
  Country: US (occurrence: US)
  Receive Date: 20180710
  Receipt Date: 20190425
  Transmission Date: 20190711
  Serious: No
  Sender: FDA-Public Use
  Company Number: US-ALLERGAN-1832132US

PATIENT
  Age: 9 Year
  Sex: Male

DRUGS (1)
  1. TRIPTORELIN PAMOATE - BP [Suspect]
     Active Substance: TRIPTORELIN PAMOATE
     Indication: PRODUCT USED FOR UNKNOWN INDICATION
     Dosage: 22.5 MG, SINGLE
     Route: 030
     Dates: start: 20180222, end: 20180222

REACTIONS (4)
  - Off label use [Unknown]
  - Spontaneous penile erection [Recovered/Resolved]
  - Aggression [Unknown]
  - Acne [Unknown]

NARRATIVE: CASE EVENT DATE: 2018
